FAERS Safety Report 9125479 (Version 2)
Quarter: 2013Q3

REPORT INFORMATION
  Report Type: Spontaneous
  Country: FR (occurrence: FR)
  Receive Date: 20130227
  Receipt Date: 20130904
  Transmission Date: 20140515
  Serious: Yes (Hospitalization)
  Sender: FDA-Public Use
  Company Number: FR-GLAXOSMITHKLINE-B0869218A

PATIENT
  Age: 55 Year
  Sex: Male

DRUGS (8)
  1. ZELITREX [Suspect]
     Indication: APLASIA
     Route: 048
     Dates: start: 20110713, end: 20110812
  2. NOXAFIL [Suspect]
     Indication: APLASIA
     Route: 048
     Dates: start: 20110713, end: 20110812
  3. LEDERFOLINE [Suspect]
     Indication: PRODUCT USED FOR UNKNOWN INDICATION
     Route: 048
     Dates: start: 20110713
  4. ORACILLINE [Suspect]
     Indication: APLASIA
     Route: 048
     Dates: start: 20110713, end: 20110812
  5. BACTRIM [Suspect]
     Indication: APLASIA
     Route: 048
     Dates: start: 20110713, end: 20110812
  6. LEUSTATINE [Concomitant]
     Indication: HAIRY CELL LEUKAEMIA
     Dates: start: 20110725, end: 20110729
  7. AUGMENTIN [Concomitant]
     Indication: PYREXIA
     Dates: start: 20110801
  8. CIFLOX [Concomitant]
     Indication: PYREXIA
     Dates: start: 20110801

REACTIONS (6)
  - Toxic skin eruption [Recovered/Resolved]
  - Dermatitis exfoliative [Recovered/Resolved]
  - Pyrexia [Recovered/Resolved]
  - Purpura [Recovered/Resolved]
  - Xerosis [Recovered/Resolved]
  - Skin exfoliation [Recovered/Resolved]
